FAERS Safety Report 16737030 (Version 5)
Quarter: 2021Q2

REPORT INFORMATION
  Report Type: Report from Study
  Country: US (occurrence: US)
  Receive Date: 20190823
  Receipt Date: 20210626
  Transmission Date: 20210716
  Serious: Yes (Other)
  Sender: FDA-Public Use
  Company Number: US-TEVA-2019-US-1096692

PATIENT
  Age: 36 Year
  Sex: Female

DRUGS (1)
  1. CLARAVIS [Suspect]
     Active Substance: ISOTRETINOIN
     Dosage: 30 MILLIGRAM DAILY;
     Route: 065
     Dates: start: 20190218, end: 20210519

REACTIONS (1)
  - Unintended pregnancy [Unknown]
